FAERS Safety Report 24451332 (Version 1)
Quarter: 2024Q4

REPORT INFORMATION
  Report Type: Spontaneous
  Country: KR (occurrence: KR)
  Receive Date: 20241017
  Receipt Date: 20241017
  Transmission Date: 20250115
  Serious: Yes (Other)
  Sender: ALEXION PHARMACEUTICALS
  Company Number: KR-AstraZeneca-2023000666247

PATIENT
  Age: 88 Year

DRUGS (4)
  1. TAGRISSO [Suspect]
     Active Substance: OSIMERTINIB
     Indication: Non-small cell lung cancer
     Dosage: 1 DAY
  2. TAGRISSO [Suspect]
     Active Substance: OSIMERTINIB
     Dosage: 1 DAY
  3. TAGRISSO [Suspect]
     Active Substance: OSIMERTINIB
     Dosage: 1 DAY
  4. TAGRISSO [Suspect]
     Active Substance: OSIMERTINIB
     Dosage: 1 DAY

REACTIONS (1)
  - Neutropenia [Unknown]
